FAERS Safety Report 7117653-X (Version None)
Quarter: 2010Q4

REPORT INFORMATION
  Report Type: 
  Country: None (occurrence: None)
  Receive Date: 20101123
  Receipt Date: 20101117
  Transmission Date: 20110411
  Serious: Yes (Hospitalization)
  Sender: FDA-Public Use
  Company Number: IT-SP-2010-06552

PATIENT
  Sex: Male

DRUGS (8)
  1. IMMUCYST [Suspect]
     Indication: BLADDER ADENOCARCINOMA STAGE UNSPECIFIED
     Route: 043
     Dates: start: 20100916, end: 20101104
  2. ASPIRIN [Concomitant]
  3. FLIXOTIDE [Concomitant]
  4. SPIRIVA [Concomitant]
  5. MOTILEX [Concomitant]
  6. TRINIPLAS [Concomitant]
  7. PERMIXON [Concomitant]
  8. SIVASTIN [Concomitant]

REACTIONS (1)
  - HAEMATURIA [None]
